FAERS Safety Report 10947933 (Version 5)
Quarter: 2016Q4

REPORT INFORMATION
  Report Type: Report from Study
  Country: BR (occurrence: BR)
  Receive Date: 20150324
  Receipt Date: 20161214
  Transmission Date: 20170206
  Serious: Yes (Hospitalization, Disabling, Other)
  Sender: FDA-Public Use
  Company Number: BR-ROCHE-1555246

PATIENT
  Age: 83 Year
  Sex: Female
  Weight: 48 kg

DRUGS (11)
  1. CLOPIDOGREL [Concomitant]
     Active Substance: CLOPIDOGREL BISULFATE
  2. MABTHERA [Suspect]
     Active Substance: RITUXIMAB
     Indication: RHEUMATOID ARTHRITIS
     Dosage: DATE OF MOST RECENT DOSE: 30/NOV/2015
     Route: 042
     Dates: start: 20140415
  3. SIMVASTATIN. [Concomitant]
     Active Substance: SIMVASTATIN
  4. CILOSTAZOL. [Concomitant]
     Active Substance: CILOSTAZOL
     Indication: CARDIOVASCULAR DISORDER
  5. MABTHERA [Suspect]
     Active Substance: RITUXIMAB
     Dosage: MOST RECENT DOSE IN NOV/2015.
     Route: 042
     Dates: start: 201505
  6. SILICON [Concomitant]
     Active Substance: SILICON
     Indication: GASTROINTESTINAL DISORDER
  7. VITAMIN D3 [Concomitant]
     Active Substance: CHOLECALCIFEROL
  8. MABTHERA [Suspect]
     Active Substance: RITUXIMAB
     Route: 042
     Dates: start: 201409
  9. PANTOPRAZOLE [Concomitant]
     Active Substance: PANTOPRAZOLE SODIUM
     Indication: GASTRIC DISORDER
  10. VELIJA [Concomitant]
     Active Substance: DULOXETINE HYDROCHLORIDE
  11. SYNTHROID [Concomitant]
     Active Substance: LEVOTHYROXINE SODIUM
     Indication: GASTRIC DISORDER
     Route: 065

REACTIONS (11)
  - Fall [Unknown]
  - Hypersensitivity [Unknown]
  - Rib fracture [Recovering/Resolving]
  - Anaemia [Unknown]
  - Abasia [Not Recovered/Not Resolved]
  - Upper limb fracture [Recovering/Resolving]
  - Arthralgia [Unknown]
  - Skin discolouration [Not Recovered/Not Resolved]
  - Cystitis [Recovering/Resolving]
  - Pelvic fracture [Recovering/Resolving]
  - Abasia [Recovering/Resolving]

NARRATIVE: CASE EVENT DATE: 201503
